FAERS Safety Report 9062777 (Version 1)
Quarter: 2013Q1

REPORT INFORMATION
  Report Type: Spontaneous
  Country: US (occurrence: US)
  Receive Date: 20130128
  Receipt Date: 20130128
  Transmission Date: 20140127
  Serious: Yes (Hospitalization)
  Sender: FDA-Public Use
  Company Number: US-BAYER-2013-008259

PATIENT
  Age: 32 Year
  Sex: Female
  Weight: 104.31 kg

DRUGS (17)
  1. YASMIN [Suspect]
  2. KERALAC [Concomitant]
  3. COZAAR [Concomitant]
     Dosage: 50 MG, UNK
  4. DITROPAN XL [Concomitant]
     Indication: HYPERTENSION
     Dosage: 15 MG TAB, 10 MG DAILY
  5. TRIAMTERENE AND HYDROCHLOROTHIAZIDE [Concomitant]
     Dosage: 37.5-25 TAB
  6. KLOR-CON [Concomitant]
     Dosage: 20 MEQ TAB
  7. CARISOPRODOL [Concomitant]
     Dosage: 350 MG, UNK
  8. METHYLPREDNISOLONE [Concomitant]
     Dosage: 4 MG PAK
  9. IBUPROFEN [Concomitant]
     Dosage: 500 MG, UNK
  10. ACETAMINOPHEN [Concomitant]
     Indication: ARTHRALGIA
     Dosage: 375/325 [AS WRITTEN] TAB 1-2 TAB Q (EVERY)
  11. ULTRACET [Concomitant]
     Indication: ARTHRALGIA
     Dosage: 4-6 [HOURS] PRN
  12. TOPROL XL [Concomitant]
     Indication: HYPERTENSION
     Dosage: 50 MG TAB A DAY, 25 MG DAILY
  13. GARLIC [Concomitant]
     Indication: SUPPLEMENTATION THERAPY
     Dosage: 1 TAB DAILY, UNK
     Route: 048
  14. APPLE CIDAR VINEGAR [Concomitant]
     Indication: SUPPLEMENTATION THERAPY
     Dosage: 1 TSP, BID
  15. MICARDIS [Concomitant]
  16. MAXIDEX [DEXAMETHASONE] [Concomitant]
  17. ORTHO EVRA [Concomitant]

REACTIONS (1)
  - Deep vein thrombosis [Recovered/Resolved]
